FAERS Safety Report 8363581-1 (Version None)
Quarter: 2012Q2

REPORT INFORMATION
  Report Type: 
  Country: None (occurrence: None)
  Receive Date: 20120516
  Receipt Date: 20120507
  Transmission Date: 20120825
  Serious: Yes (Hospitalization)
  Sender: FDA-Public Use
  Company Number: ES-ASTRAZENECA-2012SE29514

PATIENT
  Age: 39 Year
  Sex: Female

DRUGS (5)
  1. TRAMADOL HCL [Suspect]
     Indication: BACK PAIN
     Route: 048
     Dates: start: 20111203, end: 20111210
  2. CITALOPRAM HYDROBROMIDE [Suspect]
     Indication: DEPRESSION
     Route: 048
     Dates: start: 20111130, end: 20111210
  3. TRAMADOL HCL [Suspect]
     Indication: BACK PAIN
     Dosage: 37.5 MG/ 325 MG, 112 MG EVERY DAY
     Route: 048
     Dates: start: 20111121, end: 20111210
  4. VIMOVO [Suspect]
     Indication: BACK PAIN
     Dosage: 500 MG/20 MG, 1 DF DAILY
     Route: 048
     Dates: start: 20110926, end: 20111210
  5. DIAZEPAM [Concomitant]
     Indication: ANXIETY
     Route: 048
     Dates: start: 20111205, end: 20111209

REACTIONS (1)
  - MYOCLONUS [None]
